FAERS Safety Report 5833483-0 (Version None)
Quarter: 2008Q3

REPORT INFORMATION
  Report Type: 
  Country: None (occurrence: None)
  Receive Date: 20080731
  Receipt Date: 20080716
  Transmission Date: 20090109
  Serious: Yes (Hospitalization)
  Sender: FDA-Public Use
  Company Number: 2008S1012000

PATIENT
  Age: 74 Year
  Sex: Female
  Weight: 68.4932 kg

DRUGS (12)
  1. ALLOPURINOL TAB [Suspect]
     Indication: CHRONIC LYMPHOCYTIC LEUKAEMIA
     Dosage: 100 MG, DAILY, ORAL
     Route: 048
     Dates: start: 19980523, end: 20080616
  2. BENDAMUSTINE HYDROCHLORIDE [Suspect]
     Indication: CHRONIC LYMPHOCYTIC LEUKAEMIA
     Dosage: 176 MG; X1; INTRAVENOUS
     Route: 042
     Dates: start: 20080529, end: 20080530
  3. AMOXICILLIN [Suspect]
     Indication: OROPHARYNGEAL PAIN
     Dosage: ORAL
     Route: 048
     Dates: start: 20080601, end: 20080601
  4. DICLOFENAC SODIUM [Suspect]
     Dosage: 75 MG; TWICE A DAY; ORAL
     Route: 048
  5. TRIAMTEREN HCT [Suspect]
     Dosage: 37.5 MG; DAILY; ORAL
     Route: 048
  6. HYDROCHLOROTHIAZIDE (CON.) [Concomitant]
  7. MINOCYCLINE (CON.) [Concomitant]
  8. ZETIA (CON.) [Concomitant]
  9. VERAPAMIL (CON.) [Concomitant]
  10. AMBIEN (CON.) [Concomitant]
  11. TYLENOL /00020001/ (CON.) [Concomitant]
  12. POTASSIUM CHLORIDE (CON.) [Concomitant]

REACTIONS (7)
  - DIARRHOEA [None]
  - DRUG HYPERSENSITIVITY [None]
  - DYSPHAGIA [None]
  - EATING DISORDER [None]
  - OROPHARYNGEAL PAIN [None]
  - STEVENS-JOHNSON SYNDROME [None]
  - STOMATITIS [None]
